FAERS Safety Report 9219748 (Version 1)
Quarter: 2013Q2

REPORT INFORMATION
  Report Type: Spontaneous
  Country: US (occurrence: None)
  Receive Date: 20130405
  Receipt Date: 20130405
  Transmission Date: 20140414
  Serious: Yes (Hospitalization, Other)
  Sender: FDA-Public Use
  Company Number: 2013P1004232

PATIENT
  Age: 34 Year
  Sex: Female

DRUGS (1)
  1. GENTAMICIN [Suspect]
     Indication: URINARY TRACT INFECTION
     Route: 051

REACTIONS (1)
  - Bartter^s syndrome [None]
